FAERS Safety Report 8773584 (Version 1)
Quarter: 2012Q4

REPORT INFORMATION
  Report Type: 
  Country: US (occurrence: US)
  Receive Date: 20120912
  Receipt Date: 20120912
  Transmission Date: 20130627
  Serious: No
  Sender: FDA-Public Use
  Company Number: US-TEVA-350118USA

PATIENT
  Age: 23 Year
  Sex: Female
  Weight: 46.31 kg

DRUGS (4)
  1. QNASL [Suspect]
     Route: 055
     Dates: start: 20120716, end: 20120721
  2. SEIZURE MEDS [Concomitant]
     Indication: CONVULSION
  3. STOMACH MEDS [Concomitant]
     Indication: GASTRIC DISORDER
  4. VITAMINS [Concomitant]

REACTIONS (2)
  - Headache [Not Recovered/Not Resolved]
  - Ear disorder [Not Recovered/Not Resolved]
